FAERS Safety Report 24787205 (Version 1)
Quarter: 2024Q4

REPORT INFORMATION
  Report Type: Spontaneous
  Country: US (occurrence: US)
  Receive Date: 20241230
  Receipt Date: 20241230
  Transmission Date: 20250114
  Serious: No
  Sender: ALEXION PHARMACEUTICALS
  Company Number: US-AstraZeneca-CH-00775113AP

PATIENT

DRUGS (1)
  1. SYMBICORT [Suspect]
     Active Substance: BUDESONIDE\FORMOTEROL FUMARATE DIHYDRATE
     Dosage: 160 UNK

REACTIONS (6)
  - Product dose omission issue [Unknown]
  - Poor quality product administered [Unknown]
  - Device malfunction [Unknown]
  - No adverse event [Unknown]
  - Device delivery system issue [Unknown]
  - Chronic obstructive pulmonary disease [Unknown]
